FAERS Safety Report 6220195-7 (Version None)
Quarter: 2009Q2

REPORT INFORMATION
  Report Type: 
  Country: None (occurrence: None)
  Receive Date: 20090605
  Receipt Date: 20090520
  Transmission Date: 20091009
  Serious: Yes (Death)
  Sender: FDA-Public Use
  Company Number: JP-2009-1158

PATIENT
  Age: 70 Year
  Sex: Female

DRUGS (2)
  1. NAVELBINE [Suspect]
     Indication: BREAST CANCER RECURRENT
     Dosage: 35 MG IV
     Route: 042
     Dates: start: 20090120, end: 20090413
  2. HERCEPTIN [Concomitant]

REACTIONS (1)
  - INTERSTITIAL LUNG DISEASE [None]
